FAERS Safety Report 24187587 (Version 2)
Quarter: 2024Q3

REPORT INFORMATION
  Report Type: Spontaneous
  Country: US (occurrence: US)
  Receive Date: 20240808
  Receipt Date: 20240822
  Transmission Date: 20241016
  Serious: No
  Sender: HETERO
  Company Number: US-HETERO-HET2024US02558

PATIENT
  Age: 31 Year
  Sex: Male
  Weight: 81.6 kg

DRUGS (2)
  1. MESALAMINE [Suspect]
     Active Substance: MESALAMINE
     Indication: Colitis ulcerative
     Dosage: 1000 MILLIGRAM, Q.H.S.
     Route: 054
     Dates: start: 20240726, end: 20240729
  2. MESALAMINE [Suspect]
     Active Substance: MESALAMINE
     Indication: Proctitis

REACTIONS (4)
  - Trismus [Recovered/Resolved]
  - Arthralgia [Recovered/Resolved]
  - Headache [Recovered/Resolved]
  - Fatigue [Recovered/Resolved]

NARRATIVE: CASE EVENT DATE: 20240727
